FAERS Safety Report 10546766 (Version 1)
Quarter: 2014Q4

REPORT INFORMATION
  Report Type: Spontaneous
  Country: US (occurrence: US)
  Receive Date: 20141027
  Receipt Date: 20141027
  Transmission Date: 20150529
  Serious: No
  Sender: FDA-Public Use
  Company Number: US-ABBVIE-14P-163-1297073-00

PATIENT
  Sex: Female

DRUGS (2)
  1. LUPRON DEPOT [Suspect]
     Active Substance: LEUPROLIDE ACETATE
     Indication: ENDOMETRIOSIS
     Route: 050
     Dates: start: 2012, end: 2012
  2. MINASTRIN 24 FE [Concomitant]
     Active Substance: ETHINYL ESTRADIOL\NORETHINDRONE ACETATE
     Indication: CONTRACEPTION

REACTIONS (2)
  - Hyperhidrosis [Recovered/Resolved]
  - Mood swings [Recovered/Resolved]

NARRATIVE: CASE EVENT DATE: 2012
